FAERS Safety Report 6878272-3 (Version None)
Quarter: 2010Q3

REPORT INFORMATION
  Report Type: 
  Country: None (occurrence: None)
  Receive Date: 20100728
  Receipt Date: 20100723
  Transmission Date: 20110219
  Serious: Yes (Other)
  Sender: FDA-Public Use
  Company Number: BE-PFIZER INC-2010069534

PATIENT
  Age: 52 Year
  Sex: Male
  Weight: 74 kg

DRUGS (6)
  1. TOVIAZ [Suspect]
     Dosage: 8 MG, 1X/DAY
     Route: 048
     Dates: start: 20091019
  2. ESCITALOPRAM [Concomitant]
     Dosage: 10 MG, 1X/DAY
     Route: 048
  3. ZYPREXA [Concomitant]
     Dosage: 5 MG, 1X/DAY
     Route: 048
  4. LORAZEPAM [Concomitant]
     Dosage: 2 MG, 1X/DAY
     Route: 048
  5. OMEPRAZOLE [Concomitant]
     Dosage: 40 MG, 1X/DAY
     Route: 048
  6. XANAX [Concomitant]
     Dosage: 0.5 MG, 2X/DAY
     Route: 048

REACTIONS (2)
  - HYPOKINESIA [None]
  - SOMNOLENCE [None]
